FAERS Safety Report 7355122-2 (Version None)
Quarter: 2011Q1

REPORT INFORMATION
  Report Type: 
  Country: None (occurrence: None)
  Receive Date: 20110316
  Receipt Date: 20110311
  Transmission Date: 20110831
  Serious: Yes (Death)
  Sender: FDA-Public Use
  Company Number: JP-ELI_LILLY_AND_COMPANY-JP201103003833

PATIENT
  Age: 84 Year
  Sex: Female

DRUGS (11)
  1. LOXONIN [Concomitant]
     Dosage: 3 D/F, 3/D
     Route: 048
  2. PROCYLIN [Concomitant]
     Dosage: 3 D/F, 3/D
     Route: 048
  3. MICARDIS [Concomitant]
     Dosage: 1 D/F, DAILY (1/D)
     Route: 048
  4. FORTEO [Suspect]
     Indication: OSTEOPOROSIS
     Dosage: UNK, DAILY (1/D)
     Route: 058
     Dates: start: 20101130, end: 20110202
  5. ASPIRIN [Concomitant]
     Dosage: 1 D/F, DAILY (1/D)
     Route: 048
  6. MYSLEE [Concomitant]
     Dosage: 2 D/F, DAILY (1/D)
     Route: 048
  7. HERBESSER [Concomitant]
     Dosage: 3 D/F, 3/D
     Route: 048
  8. DIAZEPAM [Concomitant]
     Dosage: 2 D/F, DAILY (1/D)
     Route: 048
  9. GASTER [Concomitant]
     Dosage: 2 D/F, 2/D
     Route: 048
  10. MAGNESIUM OXIDE [Concomitant]
     Dosage: 0.752 G, 3/D
     Route: 048
  11. DEPAS [Concomitant]
     Dosage: 2 D/F, DAILY (1/D)
     Route: 048

REACTIONS (1)
  - CARDIO-RESPIRATORY ARREST [None]
